FAERS Safety Report 15206486 (Version 8)
Quarter: 2019Q2

REPORT INFORMATION
  Report Type: Spontaneous
  Country: CA (occurrence: CA)
  Receive Date: 20180727
  Receipt Date: 20190624
  Transmission Date: 20190711
  Serious: Yes (Hospitalization, Other)
  Sender: FDA-Public Use
  Company Number: CA-CELLTRION INC.-2018CA021571

PATIENT

DRUGS (31)
  1. INFLECTRA [Suspect]
     Active Substance: INFLIXIMAB-DYYB
     Indication: CROHN^S DISEASE
     Dosage: 300 MG, (EVERY 2, 6 WEEKS, THEN EVERY 8 WEEKS)
     Route: 042
     Dates: start: 20180515, end: 20180527
  2. INFLECTRA [Suspect]
     Active Substance: INFLIXIMAB-DYYB
     Dosage: 300 MG, (EVERY 2, 6 WEEKS, THEN EVERY 8 WEEKS)
     Route: 042
     Dates: start: 20180727
  3. INFLECTRA [Suspect]
     Active Substance: INFLIXIMAB-DYYB
     Dosage: 300 MG Q 0, 2, 6 WEEKS (RE-INDUCTION), THEN EVERY 8 WEEKS
     Route: 042
     Dates: start: 20190610
  4. METRONIDAZOLE. [Suspect]
     Active Substance: METRONIDAZOLE
     Dosage: UNK
  5. PANTOPRAZOLE [Concomitant]
     Active Substance: PANTOPRAZOLE
     Dosage: 40 MG, DAILY
     Route: 048
     Dates: start: 2018
  6. BUDESONIDE ER [Concomitant]
     Active Substance: BUDESONIDE
     Dosage: 6 MG, DAILY FOR 2 WEEKS
     Route: 048
  7. RANITIDINE. [Concomitant]
     Active Substance: RANITIDINE
     Indication: CROHN^S DISEASE
     Dosage: UNK UNK, DAILY
  8. INFLECTRA [Suspect]
     Active Substance: INFLIXIMAB-DYYB
     Dosage: 500 MG, MONTHLY
     Route: 042
  9. CEFTRIAXONE SODIUM. [Suspect]
     Active Substance: CEFTRIAXONE SODIUM
     Dosage: UNK
     Route: 065
  10. VITAMIN D NOS [Concomitant]
     Active Substance: VITAMIN D NOS
     Indication: CROHN^S DISEASE
     Dosage: 1000 IU, DAILY
     Route: 048
     Dates: start: 2018
  11. METHOTREXATE SODIUM. [Suspect]
     Active Substance: METHOTREXATE SODIUM
     Dosage: 15 MG, WEEKLY (EVERY FRIDAY)
     Route: 058
  12. ASACOL [Concomitant]
     Active Substance: MESALAMINE
     Dosage: 4.8 G, DAILY (IN 3 DIVIDED DOSES)
     Dates: start: 201506, end: 201804
  13. ASACOL [Concomitant]
     Active Substance: MESALAMINE
     Dosage: UNK
  14. LYRICA [Concomitant]
     Active Substance: PREGABALIN
     Dosage: 75 MG, 1X/DAY
     Route: 048
  15. FOLIC ACID. [Concomitant]
     Active Substance: FOLIC ACID
     Dosage: 2 MG MONDAY, TUESDAY, WEDNESDAY, THURSDAY, SATURDAY AND SUNDAY
     Route: 048
     Dates: start: 2018
  16. INFLECTRA [Suspect]
     Active Substance: INFLIXIMAB-DYYB
     Dosage: 10 MG/KG, (RELOAD ON WEEK 0, WEEK 2, 6, THEN EVERY 8 WEEKS )
     Route: 042
     Dates: start: 20180714
  17. CITALOPRAM [Concomitant]
     Active Substance: CITALOPRAM HYDROBROMIDE
     Dosage: REDUCED TO 20 MG DAILY
     Route: 048
     Dates: start: 2018
  18. CALCIUM CARBONATE. [Concomitant]
     Active Substance: CALCIUM CARBONATE
     Indication: CROHN^S DISEASE
     Dosage: 1250 MG, 2X/DAY
     Route: 048
     Dates: start: 2018
  19. SLOW-K [Concomitant]
     Active Substance: POTASSIUM CHLORIDE
     Dosage: 2000 MG, DAILY
     Route: 048
     Dates: start: 2018
  20. M-ESLON [Concomitant]
     Active Substance: MORPHINE SULFATE
     Dosage: 30 MG, 2X/DAY
     Route: 048
     Dates: start: 2018
  21. IMODIUM [Concomitant]
     Active Substance: LOPERAMIDE HYDROCHLORIDE
     Indication: CROHN^S DISEASE
     Dosage: FOR SOCIAL EVENTS PRN (AS NEEDED)
  22. INFLECTRA [Suspect]
     Active Substance: INFLIXIMAB-DYYB
     Dosage: 10 MG/KG, (RELOAD ON WEEK 0, WEEK 2, 6, THEN EVERY 8 WEEKS )
     Route: 042
     Dates: start: 20180827
  23. LYRICA [Concomitant]
     Active Substance: PREGABALIN
     Dosage: 75 MG, 2X/DAY
     Route: 048
     Dates: start: 2018
  24. PREDNISONE. [Concomitant]
     Active Substance: PREDNISONE
     Dosage: UNK
     Dates: start: 20180711, end: 20180722
  25. BUDESONIDE ER [Concomitant]
     Active Substance: BUDESONIDE
     Dosage: 3 MG, DAILY FOR 2 WEEKS
     Route: 048
     Dates: start: 20180823, end: 20180906
  26. LASIX [Concomitant]
     Active Substance: FUROSEMIDE
     Dosage: 40 MG, DAILY
     Route: 048
     Dates: start: 2018
  27. INFLECTRA [Suspect]
     Active Substance: INFLIXIMAB-DYYB
     Dosage: 10 MG/KG, (RELOAD ON WEEK 0, WEEK 2, 6 THEN EVERY 8 WEEKS)
     Route: 042
     Dates: start: 20180827
  28. BUDESONIDE ER [Concomitant]
     Active Substance: BUDESONIDE
     Dosage: 9 MG, DAILY FOR 4 WEEKS
     Route: 048
  29. MELATONIN [Concomitant]
     Active Substance: MELATONIN
     Dosage: 5 MG, AT BED TIME.(H.S)
     Route: 060
     Dates: start: 2018
  30. POLYETHYLENE GLYCOL [Concomitant]
     Active Substance: POLYETHYLENE GLYCOLS
     Dosage: 17 G, 2X/DAY
     Route: 048
     Dates: start: 2018
  31. HYDROMORPHONE HYDROCHLORIDE. [Suspect]
     Active Substance: HYDROMORPHONE HYDROCHLORIDE
     Dosage: UNK
     Route: 065

REACTIONS (10)
  - Pelvic fracture [Unknown]
  - Depression suicidal [Unknown]
  - Cognitive disorder [Unknown]
  - Arthralgia [Unknown]
  - Pain [Unknown]
  - Obstruction [Unknown]
  - Suicide attempt [Unknown]
  - Mental disorder [Unknown]
  - Feeling abnormal [Unknown]
  - Malaise [Unknown]

NARRATIVE: CASE EVENT DATE: 2018
